FAERS Safety Report 8160474-X (Version None)
Quarter: 2012Q1

REPORT INFORMATION
  Report Type: 
  Country: None (occurrence: None)
  Receive Date: 20120223
  Receipt Date: 20120214
  Transmission Date: 20120608
  Serious: Yes (Other)
  Sender: FDA-Public Use
  Company Number: US-ABBOTT-12P-163-0904726-00

PATIENT
  Age: 52 Year
  Sex: Female

DRUGS (8)
  1. PHENERGAN [Concomitant]
     Indication: NAUSEA
  2. OXYCODONE HCL [Concomitant]
     Indication: PAIN
     Dosage: 1 Q 6 HRS PRN
  3. HUMIRA [Suspect]
     Indication: REITER'S SYNDROME
  4. FENTANYL-100 [Concomitant]
     Indication: PRODUCT USED FOR UNKNOWN INDICATION
  5. CLONAZEPAM [Concomitant]
     Indication: ANXIETY
  6. HUMIRA [Suspect]
     Indication: AMYLOIDOSIS
  7. BACLOFEN [Concomitant]
     Indication: MUSCLE SPASMS
     Dosage: Q 8 HRS PRN
  8. CLONAZEPAM [Concomitant]
     Indication: INSOMNIA
     Dosage: 1 Q HS PRN MAY TAKE MORE IF NEEDED

REACTIONS (7)
  - EXOSTOSIS [None]
  - JOINT INJURY [None]
  - FALL [None]
  - HEAD INJURY [None]
  - LACERATION [None]
  - LOSS OF CONSCIOUSNESS [None]
  - JOINT DISLOCATION [None]
